FAERS Safety Report 9914865 (Version 3)
Quarter: 2014Q4

REPORT INFORMATION
  Report Type: Spontaneous
  Country: FR (occurrence: FR)
  Receive Date: 20140220
  Receipt Date: 20141016
  Transmission Date: 20150529
  Serious: Yes (Hospitalization, Other)
  Sender: FDA-Public Use
  Company Number: FR-ASTRAZENECA-2014SE11247

PATIENT
  Age: 896 Month
  Sex: Female

DRUGS (10)
  1. AMOXICILLIN/CLAVULANIC ACID [Suspect]
     Active Substance: AMOXICILLIN\CLAVULANIC ACID
     Dosage: DAILY
     Route: 042
     Dates: start: 20131228, end: 20131230
  2. PYOSTACINE [Suspect]
     Active Substance: PRISTINAMYCIN
     Dosage: DAILY
     Route: 048
     Dates: start: 20131226, end: 20131227
  3. UVEDOSE [Concomitant]
     Active Substance: CHOLECALCIFEROL
  4. TOPALGIC [Suspect]
     Active Substance: TRAMADOL
     Dosage: DAILY
     Route: 048
     Dates: start: 20131228, end: 20140101
  5. VASTEN [Concomitant]
     Active Substance: PRAVASTATIN SODIUM
  6. INEXIUM [Suspect]
     Active Substance: ESOMEPRAZOLE
     Dosage: DAILY
     Route: 048
     Dates: start: 20131228, end: 20131229
  7. ASPEGIC [Concomitant]
     Active Substance: ASPIRIN DL-LYSINE
     Dosage: 100
  8. IBUPROFENE [Suspect]
     Active Substance: IBUPROFEN
     Dosage: DAILY
     Route: 048
     Dates: start: 20131226, end: 20131227
  9. APROVEL [Concomitant]
     Active Substance: IRBESARTAN
  10. DAFALGAN [Concomitant]
     Active Substance: ACETAMINOPHEN

REACTIONS (8)
  - Pasteurella test positive [Unknown]
  - Cholestasis [Recovered/Resolved]
  - Cellulitis [Unknown]
  - Vomiting [Unknown]
  - Diarrhoea [Unknown]
  - Acute kidney injury [Unknown]
  - Hepatocellular injury [Recovered/Resolved]
  - Drug reaction with eosinophilia and systemic symptoms [Recovering/Resolving]

NARRATIVE: CASE EVENT DATE: 201312
